FAERS Safety Report 5223445-9 (Version None)
Quarter: 2007Q1

REPORT INFORMATION
  Report Type: 
  Country: None (occurrence: None)
  Receive Date: 20070125
  Receipt Date: 20070123
  Transmission Date: 20070707
  Serious: Yes (Other)
  Sender: FDA-Public Use
  Company Number: 220696

PATIENT
  Sex: Male
  Weight: 65 kg

DRUGS (7)
  1. MABTHERA (RITUXIMAB) CONC FOR SOLUTION FOR INFUSION [Suspect]
     Indication: NON-HODGKIN'S LYMPHOMA
     Dosage: 700 MG, 2/MONTH, INTRAVENOUS
     Route: 042
     Dates: start: 20050607
  2. ONCOVIN [Suspect]
     Indication: NON-HODGKIN'S LYMPHOMA
     Dosage: 2 MG, 2/MONTH, INTRAVENOUS
     Route: 042
     Dates: start: 20050607
  3. CYCLOPHOSPHAMIDE [Suspect]
     Indication: NON-HODGKIN'S LYMPHOMA
     Dosage: 1400 MG, INTRAVENOUS
     Route: 042
     Dates: start: 20050607
  4. FARMORUBICIN (EPIRUBICIN HYDROCHLORIDE) [Suspect]
     Indication: NON-HODGKIN'S LYMPHOMA
     Dosage: 140 MG, 2/MONTH, INTRAVENOUS
     Route: 042
     Dates: start: 20050607
  5. PREDNISONE TAB [Suspect]
     Indication: NON-HODGKIN'S LYMPHOMA
     Dosage: 1000 MG, 1/MONTH, ORAL
     Route: 048
     Dates: start: 20050607
  6. ZOFRAN [Concomitant]
  7. NAVOBAN (TROPISETRON HYDROCHLORIDE) [Concomitant]

REACTIONS (6)
  - ACTIVITIES OF DAILY LIVING IMPAIRED [None]
  - MOTOR DYSFUNCTION [None]
  - MUSCLE SPASMS [None]
  - NEURALGIA [None]
  - PARAESTHESIA [None]
  - PARESIS [None]
